FAERS Safety Report 8272238 (Version 2)
Quarter: 2013Q2

REPORT INFORMATION
  Report Type: Report from Study
  Country: US (occurrence: US)
  Receive Date: 20111202
  Receipt Date: 20130509
  Transmission Date: 20140414
  Serious: Yes (Hospitalization)
  Sender: FDA-Public Use
  Company Number: US-JNJFOC-20111111226

PATIENT
  Age: 12 Year
  Sex: Female

DRUGS (6)
  1. REMICADE [Suspect]
     Indication: INFLAMMATORY BOWEL DISEASE
     Route: 042
     Dates: start: 20110827
  2. 5-ASA [Suspect]
     Indication: PRODUCT USED FOR UNKNOWN INDICATION
     Route: 048
  3. BUDESONIDE [Suspect]
     Indication: PRODUCT USED FOR UNKNOWN INDICATION
  4. FERROUS  SULFATE [Concomitant]
  5. ALBUTEROL [Concomitant]
  6. PEPTAMEN [Concomitant]
     Dosage: DRUG REPORTED AS PEPTOMEN JUNIOR 1.5

REACTIONS (1)
  - Ileal stenosis [Recovered/Resolved]
